FAERS Safety Report 5893229-7 (Version None)
Quarter: 2008Q3

REPORT INFORMATION
  Report Type: 
  Country: None (occurrence: None)
  Receive Date: 20080923
  Receipt Date: 20080919
  Transmission Date: 20090109
  Serious: Yes (Other)
  Sender: FDA-Public Use
  Company Number: A0747244A

PATIENT
  Sex: Female

DRUGS (1)
  1. ALLI [Suspect]
     Indication: DRUG USE FOR UNKNOWN INDICATION
     Route: 048

REACTIONS (6)
  - FATIGUE [None]
  - ILL-DEFINED DISORDER [None]
  - LYMPHOMA [None]
  - METASTASIS [None]
  - THYROID CANCER [None]
  - WEIGHT INCREASED [None]
